FAERS Safety Report 6155519-2 (Version None)
Quarter: 2009Q2

REPORT INFORMATION
  Report Type: 
  Country: None (occurrence: None)
  Receive Date: 20090415
  Receipt Date: 20090408
  Transmission Date: 20091009
  Serious: Yes (Hospitalization)
  Sender: FDA-Public Use
  Company Number: US-JNJFOC-20090402564

PATIENT
  Sex: Female
  Weight: 64.41 kg

DRUGS (8)
  1. FENTANYL TRANSDERMAL SYSTEM [Suspect]
     Indication: FIBROMYALGIA
     Route: 062
  2. FENTANYL TRANSDERMAL SYSTEM [Suspect]
     Indication: OSTEOPOROSIS
     Route: 062
  3. LASIX [Concomitant]
     Indication: OEDEMA PERIPHERAL
     Route: 048
  4. FOLIC ACID [Concomitant]
     Indication: FACTOR V DEFICIENCY
     Route: 048
  5. K-DUR [Concomitant]
     Indication: HIP ARTHROPLASTY
     Route: 048
  6. PRILOSEC [Concomitant]
     Indication: GASTROOESOPHAGEAL REFLUX DISEASE
     Route: 048
  7. PERCOCET [Concomitant]
     Indication: PAIN
     Dosage: 7.5/500
     Route: 048
  8. VALIUM [Concomitant]
     Indication: NERVOUSNESS
     Route: 048

REACTIONS (6)
  - ABDOMINAL DISCOMFORT [None]
  - FALL [None]
  - GASTROENTERITIS VIRAL [None]
  - HIP FRACTURE [None]
  - WITHDRAWAL SYNDROME [None]
  - WRONG TECHNIQUE IN DRUG USAGE PROCESS [None]
